FAERS Safety Report 23542401 (Version 7)
Quarter: 2025Q2

REPORT INFORMATION
  Report Type: Report from Study
  Country: CL (occurrence: CL)
  Receive Date: 20240220
  Receipt Date: 20250620
  Transmission Date: 20250717
  Serious: Yes (Hospitalization, Other)
  Sender: JOHNSON AND JOHNSON
  Company Number: CL-JNJFOC-20240239946

PATIENT
  Age: 72 Year
  Sex: Female

DRUGS (1)
  1. SIMPONI [Suspect]
     Active Substance: GOLIMUMAB
     Indication: Rheumatoid arthritis
     Dates: start: 20220622, end: 20250409

REACTIONS (6)
  - Abscess [Not Recovered/Not Resolved]
  - Procedural complication [Unknown]
  - Post procedural complication [Unknown]
  - Abdominal hernia [Not Recovered/Not Resolved]
  - Gallbladder operation [Unknown]
  - Fistula [Unknown]

NARRATIVE: CASE EVENT DATE: 20250501
